FAERS Safety Report 20710420 (Version 2)
Quarter: 2022Q2

REPORT INFORMATION
  Report Type: Spontaneous
  Country: JP (occurrence: JP)
  Receive Date: 20220414
  Receipt Date: 20220418
  Transmission Date: 20220721
  Serious: Yes (Hospitalization)
  Sender: FDA-Public Use
  Company Number: JP-BAYER-2022A052860

PATIENT
  Age: 33 Year
  Sex: Male

DRUGS (3)
  1. AVELOX [Suspect]
     Active Substance: MOXIFLOXACIN HYDROCHLORIDE
     Route: 048
  2. PFIZER-BIONTECH COVID-19 VACCINE [Suspect]
     Active Substance: TOZINAMERAN
  3. CEPHALEXIN [Concomitant]
     Active Substance: CEPHALEXIN
     Route: 048

REACTIONS (3)
  - Necrobiosis [Recovering/Resolving]
  - Neutrophilic dermatosis [Recovering/Resolving]
  - Liver disorder [None]
